FAERS Safety Report 7589568-4 (Version None)
Quarter: 2011Q3

REPORT INFORMATION
  Report Type: 
  Country: None (occurrence: None)
  Receive Date: 20110705
  Receipt Date: 20110701
  Transmission Date: 20111222
  Serious: Yes (Hospitalization)
  Sender: FDA-Public Use
  Company Number: JP-PFIZER INC-2011147094

PATIENT
  Age: 24 Year
  Sex: Female

DRUGS (3)
  1. DEPAS [Concomitant]
     Dosage: 1 MG OF 10 TABLET
     Dates: start: 20110630, end: 20110630
  2. NORVASC [Suspect]
     Dosage: 5 MG OF 10 TABLETS
     Dates: start: 20110630, end: 20110630
  3. ALPRAZOLAM [Suspect]
     Dosage: 10 TABLETS
     Dates: start: 20110630, end: 20110630

REACTIONS (3)
  - HYPOTENSION [None]
  - DEPRESSED LEVEL OF CONSCIOUSNESS [None]
  - OVERDOSE [None]
